FAERS Safety Report 6081085-6 (Version None)
Quarter: 2009Q1

REPORT INFORMATION
  Report Type: 
  Country: None (occurrence: None)
  Receive Date: 20090114
  Receipt Date: 20071016
  Transmission Date: 20090719
  Serious: No
  Sender: FDA-Public Use
  Company Number: 267565

PATIENT
  Age: 81 Year
  Sex: Female

DRUGS (3)
  1. NOVOLIN 70/30 [Suspect]
     Indication: INSULIN-REQUIRING TYPE 2 DIABETES MELLITUS
     Dosage: 20 IU, QD, SUBCUTANEOUS
     Route: 058
  2. ZETIA [Concomitant]
  3. PRAVACHOL [Concomitant]

REACTIONS (3)
  - BLOOD GLUCOSE INCREASED [None]
  - DIVERTICULUM [None]
  - URINARY TRACT INFECTION [None]
